FAERS Safety Report 9181675 (Version 4)
Quarter: 2013Q2

REPORT INFORMATION
  Report Type: Spontaneous
  Country: JP (occurrence: JP)
  Receive Date: 20130322
  Receipt Date: 20130426
  Transmission Date: 20140414
  Serious: Yes (Life-Threatening)
  Sender: FDA-Public Use
  Company Number: JP-JNJFOC-20130309722

PATIENT
  Age: 87 Year
  Sex: Male
  Weight: 58 kg

DRUGS (7)
  1. REMINYL [Suspect]
     Indication: DEMENTIA
     Route: 048
     Dates: start: 20121211
  2. WARFARIN [Concomitant]
     Indication: PROPHYLAXIS
     Route: 048
     Dates: start: 20040126
  3. LUPRAC [Concomitant]
     Indication: CARDIAC FAILURE
     Route: 048
     Dates: start: 20070110
  4. URINORM [Concomitant]
     Indication: BLOOD URIC ACID DECREASED
     Route: 048
     Dates: start: 20100203
  5. ACECOL [Concomitant]
     Indication: CARDIAC FAILURE
     Route: 048
     Dates: start: 20080319
  6. HALCION [Concomitant]
     Indication: INSOMNIA
     Route: 048
     Dates: start: 20040126
  7. LAC-B [Concomitant]
     Indication: GASTROINTESTINAL DISORDER
     Route: 048
     Dates: start: 20040426

REACTIONS (1)
  - Pancytopenia [Recovering/Resolving]
